FAERS Safety Report 9622221 (Version 1)
Quarter: 2013Q4

REPORT INFORMATION
  Report Type: Spontaneous
  Country: US (occurrence: US)
  Receive Date: 20131015
  Receipt Date: 20131015
  Transmission Date: 20140711
  Serious: Yes (Hospitalization)
  Sender: FDA-Public Use
  Company Number: US-BAYER-2013-123035

PATIENT
  Sex: 0

DRUGS (3)
  1. ALEVE CAPLET [Suspect]
  2. CIPRO [Suspect]
  3. AMOXICILLIN [Concomitant]

REACTIONS (3)
  - Drug-induced liver injury [None]
  - Muscular weakness [None]
  - Adverse drug reaction [None]
